FAERS Safety Report 8848102 (Version 1)
Quarter: 2012Q4

REPORT INFORMATION
  Report Type: 
  Country: US (occurrence: US)
  Receive Date: 20121018
  Receipt Date: 20121018
  Transmission Date: 20130627
  Serious: Yes (Other)
  Sender: FDA-Public Use
  Company Number: US-ROCHE-1146588

PATIENT
  Age: 55 Year
  Sex: Male

DRUGS (4)
  1. AVASTIN [Suspect]
     Indication: NON-SMALL CELL LUNG CANCER
     Route: 065
  2. TARCEVA [Suspect]
     Indication: NON-SMALL CELL LUNG CANCER
     Route: 065
  3. ALIMTA [Suspect]
     Indication: NON-SMALL CELL LUNG CANCER
     Route: 065
  4. CARBOPLATIN [Suspect]
     Indication: NON-SMALL CELL LUNG CANCER
     Route: 065

REACTIONS (1)
  - Disease recurrence [Unknown]
